FAERS Safety Report 16403294 (Version 1)
Quarter: 2019Q2

REPORT INFORMATION
  Report Type: Other
  Country: ES (occurrence: ES)
  Receive Date: 20190607
  Receipt Date: 20190607
  Transmission Date: 20190711
  Serious: Yes (Other)
  Sender: FDA-Public Use
  Company Number: ES-CELLTRION INC.-2019ES021743

PATIENT

DRUGS (11)
  1. DOXORUBICIN [Concomitant]
     Active Substance: DOXORUBICIN
  2. CISPLATIN. [Concomitant]
     Active Substance: CISPLATIN
  3. RITUXIMAB (UNKNOWN) [Suspect]
     Active Substance: RITUXIMAB
     Dosage: UNK
     Route: 065
     Dates: start: 20180416, end: 20180918
  4. RITUXIMAB (UNKNOWN) [Suspect]
     Active Substance: RITUXIMAB
     Dosage: UNK
     Route: 065
     Dates: start: 20181203, end: 20181203
  5. GEMCITABINE [Concomitant]
     Active Substance: GEMCITABINE\GEMCITABINE HYDROCHLORIDE
  6. RITUXIMAB (UNKNOWN) [Suspect]
     Active Substance: RITUXIMAB
     Indication: DIFFUSE LARGE B-CELL LYMPHOMA
     Dosage: UNK
     Route: 065
     Dates: start: 20131104, end: 20140307
  7. DEXAMETHASONE. [Concomitant]
     Active Substance: DEXAMETHASONE
  8. VINCRISTINE [Concomitant]
     Active Substance: VINCRISTINE
  9. PREDNISOLONE. [Concomitant]
     Active Substance: PREDNISOLONE
  10. CYCLOPHOSPHAMIDE. [Concomitant]
     Active Substance: CYCLOPHOSPHAMIDE
  11. RITUXIMAB (UNKNOWN) [Suspect]
     Active Substance: RITUXIMAB
     Dosage: UNK
     Route: 065
     Dates: start: 20190311, end: 20190415

REACTIONS (2)
  - Haemoglobin [Unknown]
  - Breast cancer [Unknown]

NARRATIVE: CASE EVENT DATE: 201809
